FAERS Safety Report 5984123-1 (Version None)
Quarter: 2008Q4

REPORT INFORMATION
  Report Type: 
  Country: None (occurrence: None)
  Receive Date: 20081208
  Receipt Date: 20080822
  Transmission Date: 20090506
  Serious: Yes (Hospitalization)
  Sender: FDA-Public Use
  Company Number: US-AMGEN-QUU303311

PATIENT
  Sex: Female

DRUGS (2)
  1. ENBREL [Suspect]
     Indication: RHEUMATOID ARTHRITIS
     Route: 058
     Dates: start: 20020501
  2. LEFLUNOMIDE [Concomitant]
     Route: 048

REACTIONS (3)
  - FOOT OPERATION [None]
  - INCISION SITE INFECTION [None]
  - RHEUMATOID ARTHRITIS [None]
